FAERS Safety Report 23608613 (Version 1)
Quarter: 2024Q1

REPORT INFORMATION
  Report Type: Spontaneous
  Country: NL (occurrence: NL)
  Receive Date: 20240308
  Receipt Date: 20240308
  Transmission Date: 20240409
  Serious: Yes (Other)
  Sender: FDA-Public Use
  Company Number: NL-TEVA-VS-3139668

PATIENT
  Age: 79 Year

DRUGS (2)
  1. LISINOPRIL [Suspect]
     Active Substance: LISINOPRIL
     Indication: Product used for unknown indication
     Dosage: LISINOPRIL TEVA
     Route: 065
  2. LISINOPRIL [Concomitant]
     Active Substance: LISINOPRIL

REACTIONS (6)
  - Loss of consciousness [Unknown]
  - Heat cramps [Unknown]
  - Cardiac disorder [Unknown]
  - Dizziness [Unknown]
  - Fall [Unknown]
  - Heart rate increased [Unknown]
